FAERS Safety Report 7552784-1 (Version None)
Quarter: 2011Q2

REPORT INFORMATION
  Report Type: 
  Country: None (occurrence: None)
  Receive Date: 20110616
  Receipt Date: 20110615
  Transmission Date: 20111010
  Serious: Yes (Other)
  Sender: FDA-Public Use
  Company Number: US-UCBSA-035442

PATIENT
  Age: 13 Year
  Sex: Male

DRUGS (4)
  1. KEPPRA [Concomitant]
     Dosage: 1000 MG IN MORNING; 1500 MG AT NIGHT
  2. TRILEPTAL [Concomitant]
  3. LACOSAMIDE [Suspect]
     Indication: COMPLEX PARTIAL SEIZURES
     Dates: start: 20110501
  4. AFINITOR [Concomitant]
     Dosage: CLINICAL TRIAL MEDICATION
     Dates: start: 20101001

REACTIONS (3)
  - STATUS EPILEPTICUS [None]
  - GRAND MAL CONVULSION [None]
  - MOUTH ULCERATION [None]
